FAERS Safety Report 7907097-2 (Version None)
Quarter: 2011Q4

REPORT INFORMATION
  Report Type: 
  Country: None (occurrence: None)
  Receive Date: 20111110
  Receipt Date: 20110825
  Transmission Date: 20120403
  Serious: No
  Sender: FDA-Public Use
  Company Number: US-ASTRAZENECA-2011SE51131

PATIENT

DRUGS (2)
  1. LISINOPRIL [Suspect]
     Route: 048
     Dates: start: 20110302
  2. VICTOZA [Suspect]
     Route: 065
     Dates: start: 20100714

REACTIONS (4)
  - NAUSEA [None]
  - LIPASE INCREASED [None]
  - PANCREATITIS [None]
  - ABDOMINAL PAIN UPPER [None]
